FAERS Safety Report 14761894 (Version 3)
Quarter: 2018Q2

REPORT INFORMATION
  Report Type: Report from Study
  Country: US (occurrence: US)
  Receive Date: 20180416
  Receipt Date: 20180615
  Transmission Date: 20180711
  Serious: Yes (Other)
  Sender: FDA-Public Use
  Company Number: US-ROCHE-2106424

PATIENT
  Age: 6 Year
  Sex: Male

DRUGS (4)
  1. DIAZEPAM. [Suspect]
     Active Substance: DIAZEPAM
     Indication: STATUS EPILEPTICUS
     Dosage: 6 DAYS TAPER
     Route: 048
  2. LEVETIRACETAM. [Concomitant]
     Active Substance: LEVETIRACETAM
     Indication: SEIZURE
  3. VALPROATE [Concomitant]
     Active Substance: VALPROIC ACID
     Indication: SEIZURE
  4. DIAZEPAM. [Suspect]
     Active Substance: DIAZEPAM
     Dosage: DAY 6 TAPER, RECEIVED SECOND COURSE
     Route: 048

REACTIONS (2)
  - Seizure [Unknown]
  - Nasal congestion [Recovered/Resolved]
